FAERS Safety Report 4989973-6 (Version None)
Quarter: 2006Q2

REPORT INFORMATION
  Report Type: 
  Country: None (occurrence: None)
  Receive Date: 20060503
  Receipt Date: 20060426
  Transmission Date: 20061013
  Serious: Yes (Life-Threatening, Hospitalization)
  Sender: FDA-Public Use
  Company Number: HR-JNJFOC-20060405685

PATIENT
  Sex: Female
  Weight: 62 kg

DRUGS (5)
  1. DURAGESIC-100 [Suspect]
     Indication: HEAD INJURY
     Route: 062
  2. DURAGESIC-100 [Suspect]
     Route: 062
  3. AMLOPIN [Concomitant]
     Route: 048
  4. PEPTORAN [Concomitant]
     Route: 048
  5. LUBOR [Concomitant]
     Route: 048

REACTIONS (7)
  - ASTHENIA [None]
  - BRADYCARDIA [None]
  - CACHEXIA [None]
  - DEHYDRATION [None]
  - GENERAL PHYSICAL HEALTH DETERIORATION [None]
  - SYNCOPE [None]
  - VOMITING [None]
